FAERS Safety Report 21647154 (Version 4)
Quarter: 2023Q1

REPORT INFORMATION
  Report Type: Spontaneous
  Country: JP (occurrence: JP)
  Receive Date: 20221127
  Receipt Date: 20230310
  Transmission Date: 20230418
  Serious: Yes (Hospitalization, Other)
  Sender: FDA-Public Use
  Company Number: JP-BRISTOL-MYERS SQUIBB COMPANY-2022-023863

PATIENT
  Age: 81 Year
  Sex: Male

DRUGS (25)
  1. OPDIVO [Suspect]
     Active Substance: NIVOLUMAB
     Indication: Non-small cell lung cancer recurrent
     Route: 041
     Dates: start: 20210928, end: 20210928
  2. OPDIVO [Suspect]
     Active Substance: NIVOLUMAB
     Route: 041
     Dates: start: 20211026, end: 20211026
  3. OPDIVO [Suspect]
     Active Substance: NIVOLUMAB
     Route: 041
     Dates: start: 20211116, end: 20211116
  4. OPDIVO [Suspect]
     Active Substance: NIVOLUMAB
     Route: 041
     Dates: start: 20211207, end: 20211207
  5. OPDIVO [Suspect]
     Active Substance: NIVOLUMAB
     Route: 041
     Dates: start: 20211228, end: 20211228
  6. OPDIVO [Suspect]
     Active Substance: NIVOLUMAB
     Route: 041
     Dates: start: 20220118, end: 20220118
  7. OPDIVO [Suspect]
     Active Substance: NIVOLUMAB
     Route: 041
     Dates: start: 20210208, end: 20210208
  8. OPDIVO [Suspect]
     Active Substance: NIVOLUMAB
     Route: 041
     Dates: start: 20220208, end: 20220208
  9. YERVOY [Suspect]
     Active Substance: IPILIMUMAB
     Indication: Non-small cell lung cancer recurrent
     Route: 041
     Dates: start: 20210928, end: 20210928
  10. YERVOY [Suspect]
     Active Substance: IPILIMUMAB
     Route: 041
     Dates: start: 20211116, end: 20211116
  11. YERVOY [Suspect]
     Active Substance: IPILIMUMAB
     Route: 041
     Dates: start: 20211228, end: 20211228
  12. YERVOY [Suspect]
     Active Substance: IPILIMUMAB
     Route: 041
     Dates: start: 20210208, end: 20210208
  13. YERVOY [Suspect]
     Active Substance: IPILIMUMAB
     Route: 041
     Dates: start: 20220208, end: 20220208
  14. CARBOPLATIN [Suspect]
     Active Substance: CARBOPLATIN
     Indication: Non-small cell lung cancer recurrent
     Dosage: AUC=5
     Dates: start: 20210928, end: 20210928
  15. CARBOPLATIN [Suspect]
     Active Substance: CARBOPLATIN
     Dosage: AUC=4
     Dates: start: 20211026, end: 20211026
  16. PACLITAXEL [Suspect]
     Active Substance: PACLITAXEL
     Indication: Non-small cell lung cancer recurrent
     Dates: start: 20210928, end: 20210928
  17. PACLITAXEL [Suspect]
     Active Substance: PACLITAXEL
     Dates: start: 20211026, end: 20211026
  18. PREDNISOLONE [Suspect]
     Active Substance: PREDNISOLONE
     Indication: Product used for unknown indication
     Dates: start: 20220315
  19. PREDNISOLONE [Suspect]
     Active Substance: PREDNISOLONE
     Dates: start: 20220322
  20. PREDNISOLONE [Suspect]
     Active Substance: PREDNISOLONE
     Dates: start: 20220405
  21. PREDNISOLONE [Suspect]
     Active Substance: PREDNISOLONE
     Dates: start: 20220419
  22. PREDNISOLONE [Suspect]
     Active Substance: PREDNISOLONE
     Dates: start: 20220510
  23. PREDNISOLONE [Suspect]
     Active Substance: PREDNISOLONE
     Dates: start: 20220524
  24. PREDNISOLONE [Suspect]
     Active Substance: PREDNISOLONE
     Dosage: 10MG EVERYDAY
  25. PREDNISOLONE [Suspect]
     Active Substance: PREDNISOLONE

REACTIONS (6)
  - Interstitial lung disease [Recovering/Resolving]
  - Hypothyroidism [Recovering/Resolving]
  - Pleural effusion [Recovering/Resolving]
  - Atypical mycobacterial infection [Recovering/Resolving]
  - Pyrexia [Recovered/Resolved]
  - Hyperthyroidism [Unknown]

NARRATIVE: CASE EVENT DATE: 20211001
